FAERS Safety Report 8560617-X (Version None)
Quarter: 2012Q3

REPORT INFORMATION
  Report Type: 
  Country: None (occurrence: None)
  Receive Date: 20120802
  Receipt Date: 20120725
  Transmission Date: 20120928
  Serious: Yes (Other)
  Sender: FDA-Public Use
  Company Number: US-ASTRAZENECA-2012SE49457

PATIENT
  Age: 67 Year
  Sex: Female

DRUGS (3)
  1. NEXIUM [Suspect]
     Route: 048
  2. SYMBICORT [Suspect]
     Route: 055
  3. OMEPRAZOLE [Suspect]
     Route: 048

REACTIONS (4)
  - DRUG EFFECT DECREASED [None]
  - DRUG DOSE OMISSION [None]
  - MALAISE [None]
  - LUNG NEOPLASM MALIGNANT [None]
